FAERS Safety Report 6538895-8 (Version None)
Quarter: 2010Q1

REPORT INFORMATION
  Report Type: 
  Country: None (occurrence: None)
  Receive Date: 20100115
  Receipt Date: 20091229
  Transmission Date: 20100710
  Serious: No
  Sender: FDA-Public Use
  Company Number: US-B.I. PHARMACEUTICALS,INC./RIDGEFIELD-2009-BP-14968BP

PATIENT
  Sex: Male

DRUGS (2)
  1. ZANTAC 150 [Suspect]
  2. ALLEGRA [Suspect]
     Indication: MULTIPLE ALLERGIES
     Dosage: 60 MG
     Route: 048
     Dates: start: 20090801

REACTIONS (5)
  - COUGH [None]
  - DRY THROAT [None]
  - DYSPNOEA [None]
  - FATIGUE [None]
  - THROAT IRRITATION [None]
